FAERS Safety Report 6665184-3 (Version None)
Quarter: 2010Q2

REPORT INFORMATION
  Report Type: 
  Country: None (occurrence: None)
  Receive Date: 20100402
  Receipt Date: 20100330
  Transmission Date: 20101027
  Serious: Yes (Hospitalization)
  Sender: FDA-Public Use
  Company Number: US-BRISTOL-MYERS SQUIBB COMPANY-15043227

PATIENT
  Age: 71 Year
  Sex: Female
  Weight: 84 kg

DRUGS (3)
  1. COUMADIN [Suspect]
     Indication: ATRIAL FIBRILLATION
     Dosage: PRESENT DOSE:3MG(ORAL DAILY).
     Route: 048
  2. NEXIUM [Concomitant]
     Dosage: 1DF=20MG-30MG;TAKING FOR YRS.
     Route: 048
  3. SOTALOL HCL TABS 80 MG [Concomitant]
     Dosage: 1DF=1/2 TABLET.

REACTIONS (1)
  - PULMONARY THROMBOSIS [None]
